FAERS Safety Report 12670862 (Version 1)
Quarter: 2016Q3

REPORT INFORMATION
  Report Type: Spontaneous
  Country: US (occurrence: US)
  Receive Date: 20160822
  Receipt Date: 20160822
  Transmission Date: 20161109
  Serious: No
  Sender: FDA-Public Use
  Company Number: US-JAZZ-2016-US-006312

PATIENT
  Sex: Female

DRUGS (31)
  1. XYREM [Suspect]
     Active Substance: SODIUM OXYBATE
     Dosage: 2.5 G, BID
     Route: 048
     Dates: start: 201506
  2. ASPIRIN. [Concomitant]
     Active Substance: ASPIRIN
  3. COQ10 [Concomitant]
     Active Substance: UBIDECARENONE
  4. FLONASE [Concomitant]
     Active Substance: FLUTICASONE PROPIONATE
  5. METFORMIN [Concomitant]
     Active Substance: METFORMIN HYDROCHLORIDE
  6. HYDROXYZINE [Concomitant]
     Active Substance: HYDROXYZINE\HYDROXYZINE HYDROCHLORIDE
  7. METAXALONE. [Concomitant]
     Active Substance: METAXALONE
  8. NITROFURANTOIN. [Concomitant]
     Active Substance: NITROFURANTOIN
  9. OXYTROL FOR WOMEN [Concomitant]
     Active Substance: OXYBUTYNIN
  10. MUCINEX [Concomitant]
     Active Substance: GUAIFENESIN
  11. OMEPRAZOLE. [Concomitant]
     Active Substance: OMEPRAZOLE
  12. XYREM [Suspect]
     Active Substance: SODIUM OXYBATE
     Indication: NARCOLEPSY
     Dosage: 3 G, BID
     Route: 048
     Dates: start: 201108, end: 201109
  13. VENLAFAXINE HCL [Concomitant]
     Active Substance: VENLAFAXINE HYDROCHLORIDE
  14. XYREM [Suspect]
     Active Substance: SODIUM OXYBATE
     Indication: CATAPLEXY
     Dosage: 3.75 G, BID
     Route: 048
     Dates: start: 201109, end: 201110
  15. CHERATUSSIN AC [Concomitant]
     Active Substance: CODEINE PHOSPHATE\GUAIFENESIN
  16. TOPAMAX [Concomitant]
     Active Substance: TOPIRAMATE
  17. TRIAMCINOLONE [Concomitant]
     Active Substance: TRIAMCINOLONE
  18. XYREM [Suspect]
     Active Substance: SODIUM OXYBATE
     Dosage: 3.5 G, BID
     Route: 048
     Dates: start: 201602
  19. LOVASTATIN. [Concomitant]
     Active Substance: LOVASTATIN
  20. LYRICA [Concomitant]
     Active Substance: PREGABALIN
  21. MELOXICAM. [Concomitant]
     Active Substance: MELOXICAM
  22. OFLOXACIN. [Concomitant]
     Active Substance: OFLOXACIN
  23. XYREM [Suspect]
     Active Substance: SODIUM OXYBATE
     Dosage: 4.5 G, BID
     Route: 048
     Dates: start: 201110, end: 2011
  24. CLARITHROMYCIN. [Concomitant]
     Active Substance: CLARITHROMYCIN
  25. CLARITIN [Concomitant]
     Active Substance: LORATADINE
  26. KLOR-CON [Concomitant]
     Active Substance: POTASSIUM CHLORIDE
  27. VENLAFAXINE HCL [Concomitant]
     Active Substance: VENLAFAXINE HYDROCHLORIDE
  28. ZOLPIDEM TARTRATE. [Concomitant]
     Active Substance: ZOLPIDEM TARTRATE
  29. ACTONEL [Concomitant]
     Active Substance: RISEDRONATE SODIUM
  30. CLOTRIMAZOLE. [Concomitant]
     Active Substance: CLOTRIMAZOLE
  31. FISH OIL CONCENTRATE [Concomitant]

REACTIONS (1)
  - Gastroenteritis viral [Recovering/Resolving]
